FAERS Safety Report 9668745 (Version 1)
Quarter: 2013Q4

REPORT INFORMATION
  Report Type: Spontaneous
  Country: CO (occurrence: CO)
  Receive Date: 20131105
  Receipt Date: 20131105
  Transmission Date: 20140711
  Serious: Yes (Hospitalization, Other)
  Sender: FDA-Public Use
  Company Number: CO-JNJFOC-20131100909

PATIENT
  Age: 38 Year
  Sex: Female

DRUGS (2)
  1. XARELTO [Suspect]
     Indication: EMBOLISM VENOUS
     Route: 048
     Dates: start: 201210, end: 201308
  2. XARELTO [Suspect]
     Indication: DEEP VEIN THROMBOSIS
     Route: 048
     Dates: start: 201210, end: 201308

REACTIONS (2)
  - Vena cava thrombosis [Recovering/Resolving]
  - Pelvic venous thrombosis [Recovering/Resolving]
